FAERS Safety Report 19450012 (Version 1)
Quarter: 2021Q2

REPORT INFORMATION
  Report Type: Spontaneous
  Country: JP (occurrence: JP)
  Receive Date: 20210622
  Receipt Date: 20210622
  Transmission Date: 20210717
  Serious: Yes (Hospitalization, Other)
  Sender: FDA-Public Use
  Company Number: JP-ROCHE-2854216

PATIENT
  Age: 79 Year
  Sex: Male

DRUGS (1)
  1. RANIBIZUMAB. [Suspect]
     Active Substance: RANIBIZUMAB
     Indication: NEOVASCULAR AGE-RELATED MACULAR DEGENERATION
     Dosage: 3 DOSES IN YEAR 2, 5 DOSES IN YEAR 3, 5 DOSES IN YEAR 4
     Route: 050

REACTIONS (14)
  - Subretinal haematoma [Unknown]
  - Fall [Unknown]
  - Visual field tests abnormal [Unknown]
  - Wound dehiscence [Unknown]
  - Retinal degeneration [Unknown]
  - Disease progression [Unknown]
  - Skin cancer [Unknown]
  - Vitreous haemorrhage [Unknown]
  - Detachment of retinal pigment epithelium [Unknown]
  - Contusion [Unknown]
  - Retinal haemorrhage [Unknown]
  - Age-related macular degeneration [Unknown]
  - Neovascular age-related macular degeneration [Unknown]
  - Visual acuity reduced [Unknown]
